FAERS Safety Report 15753527 (Version 1)
Quarter: 2018Q4

REPORT INFORMATION
  Report Type: Spontaneous
  Country: NL (occurrence: NL)
  Receive Date: 20181222
  Receipt Date: 20181222
  Transmission Date: 20190205
  Serious: Yes (Hospitalization, Other)
  Sender: FDA-Public Use
  Company Number: NL-AUROBINDO-AUR-APL-2018-061638

PATIENT
  Age: 63 Year
  Sex: Male

DRUGS (4)
  1. CARBOPLATIN. [Suspect]
     Active Substance: CARBOPLATIN
     Indication: NON-SMALL CELL LUNG CANCER
     Dosage: 800 MILLIGRAM, (ON 14/NOV/2018, THE MOST CURRENT TREATMENT OF CARBOPLATIN WAS ADMINISTERED)
     Route: 042
     Dates: start: 20181024
  2. PACLITAXEL. [Suspect]
     Active Substance: PACLITAXEL
     Indication: NON-SMALL CELL LUNG CANCER
     Dosage: 420 MILLIGRAM, (ON 14/NOV/2018, MOST CURRENT TREATMENT OF PACLITAXEL WAS ADMINISTERED)
     Route: 042
     Dates: start: 20181024
  3. BEVACIZUMAB. [Suspect]
     Active Substance: BEVACIZUMAB
     Indication: NON-SMALL CELL LUNG CANCER
     Dosage: 1325 MILLIGRAM, (14/NOV/2018, THE MOST CURRENT TREATMENT OF BEVACIZUMAB WAS ADMINISTERED)
     Route: 042
     Dates: start: 20181024
  4. OMEPRAZOLE. [Concomitant]
     Active Substance: OMEPRAZOLE
     Indication: PRODUCT USED FOR UNKNOWN INDICATION
     Dosage: 20 MILLIGRAM
     Route: 065
     Dates: start: 20181122, end: 20181129

REACTIONS (2)
  - Febrile neutropenia [Recovered/Resolved]
  - Pyrexia [Recovered/Resolved]

NARRATIVE: CASE EVENT DATE: 20181129
